FAERS Safety Report 26199376 (Version 1)
Quarter: 2025Q4

REPORT INFORMATION
  Report Type: Spontaneous
  Country: EU (occurrence: EU)
  Receive Date: 20251225
  Receipt Date: 20251225
  Transmission Date: 20260118
  Serious: Yes (Death, Hospitalization, Other)
  Sender: ASTELLAS
  Company Number: EU-ASTELLAS-2025-AER-071856

PATIENT
  Age: 63 Year
  Sex: Male

DRUGS (5)
  1. TACROLIMUS [Suspect]
     Active Substance: TACROLIMUS
     Indication: Lung transplant
     Dosage: TARGET THERAPEUTIC RANGE FOR TACROLIMUS WAS APPROXIMATELY 15 NG/ML?DURING THE FIRST SIX MONTHS POST-
     Route: 065
  2. MYCOPHENOLIC ACID [Concomitant]
     Active Substance: MYCOPHENOLIC ACID
     Indication: Lung transplant
     Route: 065
  3. PREDNISONE [Concomitant]
     Active Substance: PREDNISONE
     Indication: Lung transplant
     Route: 065
  4. AMPHOTERICIN B [Concomitant]
     Active Substance: AMPHOTERICIN B
     Indication: Prophylaxis
     Dosage: NEBULIZED
     Route: 065
  5. SULFAMETHOXAZOLE\TRIMETHOPRIM [Concomitant]
     Active Substance: SULFAMETHOXAZOLE\TRIMETHOPRIM
     Indication: Prophylaxis
     Route: 065

REACTIONS (8)
  - Cytomegalovirus viraemia [Fatal]
  - Aspergillus infection [Fatal]
  - Kaposi^s sarcoma [Fatal]
  - Human herpesvirus 8 infection [Fatal]
  - Respiratory failure [Fatal]
  - Disease progression [Fatal]
  - Condition aggravated [Fatal]
  - Off label use [Unknown]
